FAERS Safety Report 24343828 (Version 1)
Quarter: 2024Q3

REPORT INFORMATION
  Report Type: Spontaneous
  Country: US (occurrence: None)
  Receive Date: 20240919
  Receipt Date: 20240919
  Transmission Date: 20241017
  Serious: Yes (Other)
  Sender: Public
  Company Number: None

PATIENT
  Age: 20 Year
  Sex: Female
  Weight: 57.15 kg

DRUGS (1)
  1. IBUPROFEN [Suspect]
     Active Substance: IBUPROFEN
     Indication: Dysmenorrhoea
     Dosage: OTHER QUANTITY : 3 TABLET(S)?FREQUENCY : AT BEDTIME?
     Route: 048
     Dates: start: 20240917, end: 20240917

REACTIONS (4)
  - Accidental exposure to product by child [None]
  - Heart rate increased [None]
  - Delirium [None]
  - Somnolence [None]

NARRATIVE: CASE EVENT DATE: 20240917
